FAERS Safety Report 13441273 (Version 1)
Quarter: 2017Q2

REPORT INFORMATION
  Report Type: Spontaneous
  Country: US (occurrence: US)
  Receive Date: 20170413
  Receipt Date: 20170413
  Transmission Date: 20170830
  Serious: Yes (Hospitalization, Other)
  Sender: FDA-Public Use
  Company Number: US-LUPIN PHARMACEUTICALS INC.-2016-05820

PATIENT
  Age: 68 Year
  Sex: Female

DRUGS (1)
  1. SULFAMETHOXAZOLE AND TRIMETHOPRIM [Suspect]
     Active Substance: SULFAMETHOXAZOLE\TRIMETHOPRIM
     Indication: DIVERTICULITIS
     Dosage: UNK UNK,UNK,UNKNOWN
     Route: 065

REACTIONS (5)
  - Meningitis aseptic [Unknown]
  - Drug-induced liver injury [Unknown]
  - Thrombocytopenia [Unknown]
  - Rash maculo-papular [Unknown]
  - Neutropenia [Unknown]
